FAERS Safety Report 22212040 (Version 1)
Quarter: 2023Q2

REPORT INFORMATION
  Report Type: Spontaneous
  Country: US (occurrence: US)
  Receive Date: 20230414
  Receipt Date: 20230414
  Transmission Date: 20230721
  Serious: No
  Sender: FDA-Public Use
  Company Number: US-BIOVITRUM-2022-US-14313

PATIENT
  Age: 56 Year
  Sex: Male

DRUGS (4)
  1. KINERET [Suspect]
     Active Substance: ANAKINRA
     Indication: Autoinflammatory disease
     Dosage: 100 MG DAILY
     Route: 058
     Dates: start: 20221129
  2. KINERET [Suspect]
     Active Substance: ANAKINRA
     Indication: Osteomyelitis chronic
  3. PREDNISONE [Concomitant]
     Active Substance: PREDNISONE
     Indication: Product used for unknown indication
     Dosage: 5 MG
     Route: 065
  4. FOSAMAX [Concomitant]
     Active Substance: ALENDRONATE SODIUM
     Indication: Product used for unknown indication
     Route: 065

REACTIONS (13)
  - Intentional product misuse [Not Recovered/Not Resolved]
  - Fear of death [Unknown]
  - Nausea [Unknown]
  - Headache [Unknown]
  - Fatigue [Unknown]
  - Injection site bruising [Unknown]
  - Injection site discolouration [Unknown]
  - Autoinflammatory disease [Unknown]
  - Back pain [Unknown]
  - Swelling [Unknown]
  - Feeling abnormal [Unknown]
  - Inflammatory marker increased [Unknown]
  - Pain [Unknown]

NARRATIVE: CASE EVENT DATE: 20221129
